FAERS Safety Report 5653589-9 (Version None)
Quarter: 2008Q1

REPORT INFORMATION
  Report Type: 
  Country: None (occurrence: None)
  Receive Date: 20080306
  Receipt Date: 20080226
  Transmission Date: 20080703
  Serious: Yes (Other)
  Sender: FDA-Public Use
  Company Number: US-JNJFOC-20080206827

PATIENT
  Sex: Female

DRUGS (1)
  1. DURAGESIC-100 [Suspect]
     Indication: PAIN
     Route: 062

REACTIONS (6)
  - DEVICE LEAKAGE [None]
  - HEART RATE IRREGULAR [None]
  - HYPERHIDROSIS [None]
  - INSOMNIA [None]
  - PANCREATITIS [None]
  - WRONG TECHNIQUE IN DRUG USAGE PROCESS [None]
